FAERS Safety Report 8840787 (Version 1)
Quarter: 2012Q4

REPORT INFORMATION
  Report Type: 
  Country: US (occurrence: US)
  Receive Date: 20121015
  Receipt Date: 20121015
  Transmission Date: 20130627
  Serious: Yes (Other)
  Sender: FDA-Public Use
  Company Number: PHHY2012US089830

PATIENT
  Age: 66 Year
  Sex: Male

DRUGS (1)
  1. ACETYLSALICYLIC ACID [Suspect]
     Indication: HEADACHE
     Route: 048
     Dates: end: 2007

REACTIONS (1)
  - Ulcer haemorrhage [Recovered/Resolved]
